FAERS Safety Report 17824847 (Version 1)
Quarter: 2020Q2

REPORT INFORMATION
  Report Type: Spontaneous
  Country: IT (occurrence: IT)
  Receive Date: 20200526
  Receipt Date: 20200526
  Transmission Date: 20200714
  Serious: Yes (Death, Other)
  Sender: FDA-Public Use
  Company Number: IT-AMGEN-ITASP2020080906

PATIENT

DRUGS (5)
  1. IMATINIB. [Concomitant]
     Active Substance: IMATINIB MESYLATE
     Indication: CHRONIC MYELOID LEUKAEMIA
     Dosage: 400 MILLIGRAM, QD
  2. EPOETIN ALFA [Suspect]
     Active Substance: ERYTHROPOIETIN
     Indication: CHRONIC MYELOID LEUKAEMIA
     Dosage: 40000 UI, QWK
     Route: 065
  3. IMATINIB. [Concomitant]
     Active Substance: IMATINIB MESYLATE
     Dosage: 300 MILLIGRAM, QD
  4. DARBEPOETIN ALFA [Suspect]
     Active Substance: DARBEPOETIN ALFA
     Indication: CHRONIC MYELOID LEUKAEMIA
     Dosage: 150 MICROGRAM/KILOGRAM, QWK
     Route: 065
  5. IMATINIB. [Concomitant]
     Active Substance: IMATINIB MESYLATE
     Dosage: 200 MILLIGRAM, QD

REACTIONS (3)
  - Chronic myeloid leukaemia recurrent [Unknown]
  - Drug resistance [Unknown]
  - Death [Fatal]
